FAERS Safety Report 5735528-5 (Version None)
Quarter: 2008Q2

REPORT INFORMATION
  Report Type: 
  Country: None (occurrence: None)
  Receive Date: 20080512
  Receipt Date: 20080505
  Transmission Date: 20081010
  Serious: Yes (Hospitalization, Other)
  Sender: FDA-Public Use
  Company Number: DE-PFIZER INC-2008004017

PATIENT
  Sex: Female
  Weight: 101 kg

DRUGS (3)
  1. ZELDOX (CAPSULES) [Suspect]
     Indication: PSYCHOTIC DISORDER
     Route: 048
     Dates: start: 20060101, end: 20080110
  2. ZELDOX (CAPSULES) [Suspect]
     Indication: SCHIZOPHRENIA, PARANOID TYPE
  3. PAROXETINE HCL [Concomitant]
     Route: 048

REACTIONS (2)
  - HYPERTENSIVE CRISIS [None]
  - PSYCHOTIC DISORDER [None]
